FAERS Safety Report 24096651 (Version 1)
Quarter: 2024Q3

REPORT INFORMATION
  Report Type: Report from Study
  Country: AU (occurrence: AU)
  Receive Date: 20240716
  Receipt Date: 20240716
  Transmission Date: 20241017
  Serious: Yes (Death, Hospitalization)
  Sender: PFIZER
  Company Number: AU-PFIZER INC-202400212499

PATIENT

DRUGS (4)
  1. DOXORUBICIN HYDROCHLORIDE [Suspect]
     Active Substance: DOXORUBICIN HYDROCHLORIDE
     Indication: Plasma cell myeloma refractory
     Dosage: 30 MG/M2, CYCLIC ON DAY 1; GIVEN EVERY 28 DAYS
     Route: 042
  2. CYCLOPHOSPHAMIDE [Suspect]
     Active Substance: CYCLOPHOSPHAMIDE
     Indication: Plasma cell myeloma refractory
     Dosage: 600 MG/M2, CYCLIC ON DAY 1; GIVEN EVERY 28 DAYS
     Route: 042
  3. CARMUSTINE [Suspect]
     Active Substance: CARMUSTINE
     Indication: Plasma cell myeloma refractory
     Dosage: 30 MG/M2, CYCLIC, ON DAY 1; GIVEN EVERY 28 DAYS
     Route: 042
  4. PREDNISONE [Suspect]
     Active Substance: PREDNISONE
     Indication: Plasma cell myeloma refractory
     Dosage: 60 MG/M2, CYCLIC, ON DAY 1-5; GIVEN EVERY 28 DAYS
     Route: 048

REACTIONS (1)
  - Infection [Fatal]
